FAERS Safety Report 10955916 (Version 9)
Quarter: 2018Q2

REPORT INFORMATION
  Report Type: Report from Study
  Country: DE (occurrence: DE)
  Receive Date: 20150326
  Receipt Date: 20180523
  Transmission Date: 20180711
  Serious: Yes (Hospitalization, Other)
  Sender: FDA-Public Use
  Company Number: DE-ROCHE-1552181

PATIENT
  Age: 48 Year
  Sex: Female
  Weight: 52 kg

DRUGS (12)
  1. TRASTUZUMAB. [Suspect]
     Active Substance: TRASTUZUMAB
     Indication: HER-2 POSITIVE BREAST CANCER
     Dosage: LAST DOSE PRIOR TO SAE ON 06/JAN/2015?4 TIMES
     Route: 042
     Dates: start: 20141124
  2. EPIRUBICIN [Suspect]
     Active Substance: EPIRUBICIN
     Indication: HER-2 POSITIVE BREAST CANCER
     Dosage: LAST DOSE PRIOR TO SAE ON 13/OCT/2014. ?4 TIMES
     Route: 042
     Dates: start: 20140901
  3. IBUPROFEN. [Concomitant]
     Active Substance: IBUPROFEN
     Route: 065
     Dates: start: 20150417
  4. SEVREDOL [Concomitant]
     Active Substance: MORPHINE
     Route: 065
     Dates: start: 20150603
  5. LYRICA [Concomitant]
     Active Substance: PREGABALIN
     Route: 065
     Dates: start: 201411
  6. CYCLOPHOSPHAMIDE. [Suspect]
     Active Substance: CYCLOPHOSPHAMIDE
     Indication: HER-2 POSITIVE BREAST CANCER
     Dosage: LAST DOSE PRIOR TO SAE ON 13/OCT/2014.?4 TIMES
     Route: 042
     Dates: start: 20140901
  7. MORPHINE [Concomitant]
     Active Substance: MORPHINE
     Route: 065
     Dates: start: 2014
  8. DOCETAXEL. [Suspect]
     Active Substance: DOCETAXEL
     Indication: HER-2 POSITIVE BREAST CANCER
     Dosage: LAST DOSE PRIOR TO SAE ON 18/NOV/2014?4 TIMES
     Route: 042
     Dates: start: 20141103
  9. PANTOPRAZOLE [Concomitant]
     Active Substance: PANTOPRAZOLE
     Route: 065
     Dates: start: 2014
  10. TRASTUZUMAB. [Suspect]
     Active Substance: TRASTUZUMAB
     Indication: HER-2 POSITIVE BREAST CANCER
     Dosage: LAST DOSE PRIOR TO SAE ON 13/JUL/2015
     Route: 058
     Dates: start: 20150204
  11. NOVALGIN (METAMIZOLE SODIUM) [Concomitant]
     Active Substance: METAMIZOLE SODIUM
     Dosage: 160 DROP
     Route: 065
     Dates: start: 20150603
  12. PARACETAMOL [Concomitant]
     Active Substance: ACETAMINOPHEN
     Route: 065
     Dates: start: 201503

REACTIONS (2)
  - Impaired healing [Recovered/Resolved]
  - Wound dehiscence [Recovered/Resolved]

NARRATIVE: CASE EVENT DATE: 20150303
